FAERS Safety Report 5178496-X (Version None)
Quarter: 2006Q4

REPORT INFORMATION
  Report Type: 
  Country: None (occurrence: None)
  Receive Date: 20061208
  Receipt Date: 20061123
  Transmission Date: 20070319
  Serious: Yes (Hospitalization)
  Sender: FDA-Public Use
  Company Number: 2006RR-04638

PATIENT
  Age: 61 Year
  Sex: Female
  Weight: 52 kg

DRUGS (4)
  1. CIPROFLOXACIN [Suspect]
     Indication: URINARY TRACT INFECTION
     Dosage: 500 MG, BID, ORAL
     Route: 048
     Dates: start: 20061012, end: 20061026
  2. MINOCYCLINE HYDROCHLORIDE [Suspect]
     Indication: ACNE
     Dosage: 100 MG, QD, ORAL
     Route: 048
     Dates: start: 20060724, end: 20061026
  3. BETAHISTINE (BETAHISTINE) [Concomitant]
  4. NITRAZEPAM [Concomitant]

REACTIONS (1)
  - CHOLESTASIS [None]
